FAERS Safety Report 7933894-3 (Version None)
Quarter: 2011Q4

REPORT INFORMATION
  Report Type: 
  Country: None (occurrence: None)
  Receive Date: 20111122
  Receipt Date: 20111118
  Transmission Date: 20120403
  Serious: No
  Sender: FDA-Public Use
  Company Number: US-TEVA-310203USA

PATIENT
  Age: 40 Year
  Sex: Female

DRUGS (7)
  1. VENLAFAXINE [Concomitant]
  2. PROCHLORPERAZINE EDISYLATE [Concomitant]
  3. LAMOTRIGINE [Concomitant]
  4. VICODIN [Concomitant]
  5. BACLOFEN [Concomitant]
  6. COPAXONE [Suspect]
     Indication: MULTIPLE SCLEROSIS
     Route: 058
     Dates: end: 20040101
  7. SUMATRIPTAN [Concomitant]

REACTIONS (1)
  - CHEST PAIN [None]
